FAERS Safety Report 5283244-9 (Version None)
Quarter: 2007Q2

REPORT INFORMATION
  Report Type: 
  Country: None (occurrence: None)
  Receive Date: 20070402
  Receipt Date: 20070322
  Transmission Date: 20071010
  Serious: Yes (Death, Hospitalization)
  Sender: FDA-Public Use
  Company Number: GB-GLAXOSMITHKLINE-B0464416A

PATIENT
  Age: 50 Year
  Sex: Male

DRUGS (9)
  1. ZIDOVUDINE [Suspect]
     Indication: HIV INFECTION
     Dosage: 250MG PER DAY
     Dates: start: 20050701, end: 20051227
  2. KALETRA [Suspect]
     Indication: DRUG USE FOR UNKNOWN INDICATION
     Dosage: 3UNIT TWICE PER DAY
     Route: 048
     Dates: start: 20041101, end: 20051227
  3. LOPINAVIR [Suspect]
     Indication: HIV INFECTION
     Dosage: 3UNIT TWICE PER DAY
     Route: 065
     Dates: start: 20041116, end: 20051227
  4. VIDEX [Suspect]
     Indication: DRUG USE FOR UNKNOWN INDICATION
     Dosage: 400MG PER DAY
     Route: 048
     Dates: start: 20041101
  5. VIREAD [Suspect]
     Indication: HIV INFECTION
     Dosage: 245MG PER DAY
     Route: 048
     Dates: start: 20041116, end: 20051227
  6. DICLOFENAC SODIUM [Concomitant]
     Indication: PAIN
     Dosage: 50MG THREE TIMES PER DAY
     Route: 048
     Dates: start: 20051219, end: 20051226
  7. GABAPENTIN [Concomitant]
     Indication: PAIN
     Dosage: 600MG THREE TIMES PER DAY
     Route: 048
     Dates: start: 20051123, end: 20051226
  8. MS CONTIN [Concomitant]
     Indication: PAIN
     Dosage: 5MG TWICE PER DAY
     Route: 048
     Dates: start: 20051123, end: 20051226
  9. ACYCLOVIR [Concomitant]
     Indication: HERPES ZOSTER
     Route: 065

REACTIONS (3)
  - LACTIC ACIDOSIS [None]
  - RENAL FAILURE ACUTE [None]
  - VOMITING [None]
